FAERS Safety Report 5408672-X (Version None)
Quarter: 2007Q3

REPORT INFORMATION
  Report Type: 
  Country: None (occurrence: None)
  Receive Date: 20070808
  Receipt Date: 20070803
  Transmission Date: 20080115
  Serious: Yes (Hospitalization)
  Sender: FDA-Public Use
  Company Number: A0596830A

PATIENT
  Age: 15 Year
  Sex: Male
  Weight: 71.4 kg

DRUGS (4)
  1. PAXIL [Suspect]
     Indication: DEPRESSION
     Dosage: 40MG PER DAY
     Route: 048
     Dates: start: 20020808, end: 20021211
  2. PAXIL CR [Suspect]
     Indication: DRUG USE FOR UNKNOWN INDICATION
     Dosage: 25MG UNKNOWN
     Route: 048
  3. NALOXONE [Concomitant]
  4. PROMETHAZINE [Concomitant]

REACTIONS (33)
  - ANOREXIA [None]
  - ASTHENIA [None]
  - CAUDA EQUINA SYNDROME [None]
  - CONSTIPATION [None]
  - DECREASED APPETITE [None]
  - DECUBITUS ULCER [None]
  - DISTURBANCE IN ATTENTION [None]
  - FAECAL INCONTINENCE [None]
  - FAECALOMA [None]
  - FATIGUE [None]
  - FEELING OF DESPAIR [None]
  - FOOT FRACTURE [None]
  - GASTROENTERITIS VIRAL [None]
  - HEADACHE [None]
  - HYPONATRAEMIA [None]
  - INSOMNIA [None]
  - MIGRAINE [None]
  - NAUSEA [None]
  - NEUROGENIC BLADDER [None]
  - NEUROGENIC BOWEL [None]
  - PARAPLEGIA [None]
  - PLEURAL EFFUSION [None]
  - PSYCHOMOTOR HYPERACTIVITY [None]
  - RESTLESSNESS [None]
  - SOCIAL AVOIDANT BEHAVIOUR [None]
  - SPINAL CORD INJURY [None]
  - SPINAL FRACTURE [None]
  - SPINAL HAEMATOMA [None]
  - STERNAL FRACTURE [None]
  - SUICIDE ATTEMPT [None]
  - URINARY INCONTINENCE [None]
  - VOMITING [None]
  - WRIST FRACTURE [None]
